FAERS Safety Report 5143887-X (Version None)
Quarter: 2006Q4

REPORT INFORMATION
  Report Type: 
  Country: None (occurrence: None)
  Receive Date: 20061106
  Receipt Date: 20060901
  Transmission Date: 20070319
  Serious: Yes (Hospitalization, Other)
  Sender: FDA-Public Use
  Company Number: JP-BAYER-200611016BYL

PATIENT
  Age: 74 Year
  Sex: Male
  Weight: 60 kg

DRUGS (5)
  1. CIPROXAN-I.V. [Suspect]
     Indication: DIVERTICULITIS
     Dosage: TOTAL DAILY DOSE: 300 MG  UNIT DOSE: 300 MG
     Route: 042
     Dates: start: 20060812, end: 20060812
  2. CIPROXAN-I.V. [Suspect]
     Dosage: TOTAL DAILY DOSE: 600 MG  UNIT DOSE: 300 MG
     Route: 042
     Dates: start: 20060813, end: 20060813
  3. CEFZON [Concomitant]
     Route: 048
     Dates: start: 20060808
  4. CALONAL [Concomitant]
     Route: 048
     Dates: start: 20060808
  5. LOXONIN [Concomitant]
     Route: 048
     Dates: start: 20060813

REACTIONS (6)
  - ATRIAL FIBRILLATION [None]
  - C-REACTIVE PROTEIN INCREASED [None]
  - LABORATORY TEST ABNORMAL [None]
  - PLEURAL EFFUSION [None]
  - PYREXIA [None]
  - RASH [None]
